APPROVED DRUG PRODUCT: ZOSYN IN PLASTIC CONTAINER
Active Ingredient: PIPERACILLIN SODIUM; TAZOBACTAM SODIUM
Strength: EQ 4GM BASE/100ML;EQ 500MG BASE/100ML
Dosage Form/Route: INJECTABLE;INJECTION
Application: N050750 | Product #003
Applicant: BAXTER HEALTHCARE CORP
Approved: Feb 24, 1998 | RLD: Yes | RS: Yes | Type: RX